FAERS Safety Report 8102610-7 (Version None)
Quarter: 2012Q1

REPORT INFORMATION
  Report Type: 
  Country: None (occurrence: None)
  Receive Date: 20120126
  Receipt Date: 20120114
  Transmission Date: 20120608
  Serious: Yes (Hospitalization, Other)
  Sender: FDA-Public Use
  Company Number: 2012AP000128

PATIENT
  Age: 58 Year
  Sex: Male

DRUGS (3)
  1. SERTRALINE HYDROCHLORIDE [Suspect]
     Indication: PRODUCT USED FOR UNKNOWN INDICATION
  2. VENLAFAXINE [Suspect]
     Indication: PRODUCT USED FOR UNKNOWN INDICATION
  3. METOCLOPRAMIDE [Suspect]
     Indication: IMPAIRED GASTRIC EMPTYING
     Dosage: 10 MG;BID;PO
     Route: 048

REACTIONS (15)
  - BUNDLE BRANCH BLOCK LEFT [None]
  - HYPOTENSION [None]
  - RENAL FAILURE ACUTE [None]
  - CEREBRAL DISORDER [None]
  - ABNORMAL BEHAVIOUR [None]
  - CONVULSION [None]
  - FEELING JITTERY [None]
  - INCORRECT DOSE ADMINISTERED [None]
  - HAEMODIALYSIS [None]
  - METABOLIC ACIDOSIS [None]
  - CLOSTRIDIUM DIFFICILE COLITIS [None]
  - ABDOMINAL DISCOMFORT [None]
  - NEUROLEPTIC MALIGNANT SYNDROME [None]
  - QRS AXIS ABNORMAL [None]
  - SEROTONIN SYNDROME [None]
